FAERS Safety Report 19224956 (Version 3)
Quarter: 2021Q4

REPORT INFORMATION
  Report Type: Report from Study
  Country: US (occurrence: US)
  Receive Date: 20210506
  Receipt Date: 20211203
  Transmission Date: 20220304
  Serious: Yes (Other)
  Sender: FDA-Public Use
  Company Number: US-BAYER-2021-134058

PATIENT
  Age: 75 Year
  Sex: Female
  Weight: 49.433 kg

DRUGS (6)
  1. ADEMPAS [Suspect]
     Active Substance: RIOCIGUAT
     Indication: Pulmonary arterial hypertension
     Dosage: UNK
     Route: 048
     Dates: start: 20200706
  2. ADEMPAS [Suspect]
     Active Substance: RIOCIGUAT
     Indication: Pulmonary arterial hypertension
     Dosage: 1.5 MG, TID
     Route: 048
  3. ADEMPAS [Suspect]
     Active Substance: RIOCIGUAT
     Indication: Pulmonary arterial hypertension
     Dosage: 1 MG
     Dates: start: 2021
  4. TYVASO [Suspect]
     Active Substance: TREPROSTINIL
     Indication: Pulmonary arterial hypertension
     Dosage: UNK
     Route: 055
     Dates: start: 20171017
  5. OPSUMIT [Concomitant]
     Active Substance: MACITENTAN
     Indication: Pulmonary arterial hypertension
     Dosage: 10 MG, QD
     Route: 048
     Dates: start: 202007
  6. ELIQUIS [Concomitant]
     Active Substance: APIXABAN
     Dosage: UNK

REACTIONS (19)
  - Liver disorder [None]
  - Hypotension [Unknown]
  - Productive cough [Unknown]
  - Nasopharyngitis [Unknown]
  - Rhinorrhoea [None]
  - Pyrexia [None]
  - Sneezing [None]
  - Increased upper airway secretion [None]
  - Nasal congestion [Unknown]
  - Vomiting [None]
  - Upper respiratory tract infection [Unknown]
  - Vitamin B complex deficiency [Unknown]
  - Vitamin D deficiency [Unknown]
  - Feeling abnormal [Not Recovered/Not Resolved]
  - Oropharyngeal pain [None]
  - Body temperature increased [None]
  - Oral pain [None]
  - Oxygen therapy [None]
  - Dysphagia [Recovered/Resolved]

NARRATIVE: CASE EVENT DATE: 20210604
